FAERS Safety Report 6444488-3 (Version None)
Quarter: 2009Q4

REPORT INFORMATION
  Report Type: 
  Country: None (occurrence: None)
  Receive Date: 20091118
  Receipt Date: 20091117
  Transmission Date: 20100525
  Serious: Yes (Hospitalization)
  Sender: FDA-Public Use
  Company Number: JP-BAYER-200912227BYL

PATIENT
  Age: 45 Year
  Sex: Male
  Weight: 67 kg

DRUGS (8)
  1. CAMPATH [Suspect]
     Indication: STEM CELL TRANSPLANT
     Route: 042
     Dates: start: 20080727, end: 20080801
  2. DIOVAN [Concomitant]
     Indication: HYPERTENSION
     Route: 048
     Dates: start: 20090113
  3. URSO 250 [Concomitant]
     Indication: PROPHYLAXIS
     Route: 048
     Dates: start: 20090113
  4. SILECE [Concomitant]
     Indication: INSOMNIA
     Route: 048
     Dates: start: 20080804
  5. CERCINE [Concomitant]
     Indication: ANXIETY DISORDER
     Route: 048
     Dates: start: 20081023, end: 20091002
  6. DIFLUCAN [Concomitant]
     Route: 048
     Dates: start: 20080727, end: 20090515
  7. BAKTAR [Concomitant]
     Indication: INFECTION PROPHYLAXIS
     Route: 048
     Dates: start: 20080904, end: 20090514
  8. DENOSINE [Concomitant]
     Indication: CYTOMEGALOVIRUS CHORIORETINITIS
     Route: 041
     Dates: start: 20090127, end: 20090515

REACTIONS (2)
  - PNEUMONIA [None]
  - TRANSFUSION MICROCHIMERISM [None]
